FAERS Safety Report 5563123-X (Version None)
Quarter: 2007Q4

REPORT INFORMATION
  Report Type: 
  Country: None (occurrence: None)
  Receive Date: 20071217
  Receipt Date: 20071217
  Transmission Date: 20080405
  Serious: Yes (Disabling)
  Sender: FDA-Public Use
  Company Number: A0699292A

PATIENT
  Age: 32 Year
  Sex: Female
  Weight: 81.8 kg

DRUGS (3)
  1. ALLI [Suspect]
     Route: 048
  2. CELEBREX [Concomitant]
  3. IBUPROFEN [Concomitant]

REACTIONS (1)
  - RECTAL HAEMORRHAGE [None]
